APPROVED DRUG PRODUCT: ULTRAVIST (PHARMACY BULK)
Active Ingredient: IOPROMIDE
Strength: 62.3%
Dosage Form/Route: INJECTABLE;INJECTION
Application: N021425 | Product #001
Applicant: BAYER HEALTHCARE PHARMACEUTICALS INC
Approved: Sep 20, 2002 | RLD: Yes | RS: Yes | Type: RX